FAERS Safety Report 4659942-4 (Version None)
Quarter: 2005Q2

REPORT INFORMATION
  Report Type: 
  Country: None (occurrence: None)
  Receive Date: 20050512
  Receipt Date: 20040816
  Transmission Date: 20051028
  Serious: Yes (Death, Life-Threatening, Hospitalization, Disabling)
  Sender: FDA-Public Use
  Company Number: 200412663JP

PATIENT
  Age: 62 Year
  Sex: Male
  Weight: 64.95 kg

DRUGS (2)
  1. TAXOTERE [Suspect]
     Indication: OSTEITIS DEFORMANS
     Route: 041
     Dates: start: 20040726, end: 20040728
  2. NEU-UP [Suspect]
     Indication: NEUTROPENIA
     Route: 058
     Dates: start: 20040802, end: 20040808

REACTIONS (13)
  - ACUTE RESPIRATORY DISTRESS SYNDROME [None]
  - BLOOD LACTATE DEHYDROGENASE INCREASED [None]
  - BLOOD POTASSIUM DECREASED [None]
  - BLOOD UREA INCREASED [None]
  - BONE MARROW DEPRESSION [None]
  - CONDITION AGGRAVATED [None]
  - DISSEMINATED INTRAVASCULAR COAGULATION [None]
  - FEBRILE NEUTROPENIA [None]
  - INTERSTITIAL LUNG DISEASE [None]
  - OSTEITIS DEFORMANS [None]
  - PNEUMONIA [None]
  - PNEUMONIA ASPERGILLUS [None]
  - STAPHYLOCOCCAL INFECTION [None]
